FAERS Safety Report 8360286-8 (Version None)
Quarter: 2012Q2

REPORT INFORMATION
  Report Type: 
  Country: None (occurrence: None)
  Receive Date: 20120515
  Receipt Date: 20120507
  Transmission Date: 20120825
  Serious: Yes (Other)
  Sender: FDA-Public Use
  Company Number: DE-JNJFOC-20120404480

PATIENT
  Sex: Female

DRUGS (2)
  1. REGAINE MAENNER SCHAUM [Suspect]
     Route: 061
  2. REGAINE MAENNER SCHAUM [Suspect]
     Indication: ALOPECIA EFFLUVIUM
     Route: 061
     Dates: start: 20120123, end: 20120405

REACTIONS (2)
  - WRONG DRUG ADMINISTERED [None]
  - EPISTAXIS [None]
